FAERS Safety Report 9914772 (Version 2)
Quarter: 2014Q1

REPORT INFORMATION
  Report Type: Report from Study
  Country: US (occurrence: US)
  Receive Date: 20140220
  Receipt Date: 20140220
  Transmission Date: 20141002
  Serious: No
  Sender: FDA-Public Use
  Company Number: PHEH2014US002859

PATIENT
  Sex: Female

DRUGS (7)
  1. TASIGNA [Suspect]
     Indication: CHRONIC MYELOID LEUKAEMIA
     Dosage: 300 MG BID
     Route: 048
     Dates: start: 201401
  2. TRAZODONE [Concomitant]
  3. PROZAC [Concomitant]
  4. CLARITIN [Concomitant]
  5. ASA [Concomitant]
  6. CALCIUM + VIT D [Concomitant]
  7. B-COMPLEX [Concomitant]

REACTIONS (13)
  - Rash [Unknown]
  - Influenza [Unknown]
  - Nasopharyngitis [Unknown]
  - Oropharyngeal pain [Unknown]
  - Muscular weakness [Unknown]
  - Fatigue [Unknown]
  - Pruritus [Unknown]
  - Diarrhoea [Unknown]
  - Headache [Unknown]
  - Nausea [Recovered/Resolved]
  - Asthenia [Unknown]
  - Chills [Unknown]
  - Dermatitis acneiform [Unknown]
